FAERS Safety Report 4275539-2 (Version None)
Quarter: 2004Q1

REPORT INFORMATION
  Report Type: 
  Country: None (occurrence: None)
  Receive Date: 20040121
  Receipt Date: 20040114
  Transmission Date: 20041129
  Serious: Yes (Hospitalization)
  Sender: FDA-Public Use
  Company Number: US-BRISTOL-MYERS SQUIBB COMPANY-12478798

PATIENT
  Age: 77 Year
  Sex: Female
  Weight: 50 kg

DRUGS (6)
  1. CYTOXAN [Suspect]
     Indication: BREAST CANCER STAGE I
     Route: 042
     Dates: start: 20020101, end: 20030101
  2. ARIMIDEX [Concomitant]
     Dates: start: 20020101
  3. FLORINEF [Concomitant]
  4. ANZEMET [Concomitant]
     Indication: PREMEDICATION
     Route: 042
  5. ANZEMET [Concomitant]
     Dosage: AT HOME USE POST TREATMENT
     Route: 048
  6. DECADRON [Concomitant]
     Indication: PREMEDICATION
     Route: 042

REACTIONS (5)
  - ASTHENIA [None]
  - AUTONOMIC NEUROPATHY [None]
  - COMA [None]
  - HYPOTENSION [None]
  - NAUSEA [None]
